FAERS Safety Report 23046398 (Version 2)
Quarter: 2024Q3

REPORT INFORMATION
  Report Type: Spontaneous
  Country: IN (occurrence: IN)
  Receive Date: 20231009
  Receipt Date: 20240904
  Transmission Date: 20241017
  Serious: Yes (Other)
  Sender: PFIZER
  Company Number: IN-PFIZER INC-2021666253

PATIENT
  Age: 58 Year
  Sex: Male

DRUGS (5)
  1. SUTENT [Suspect]
     Active Substance: SUNITINIB MALATE
     Indication: Metastatic renal cell carcinoma
     Dosage: 37.5 MG, 1X/DAY
     Route: 048
     Dates: start: 20210603
  2. SUTENT [Suspect]
     Active Substance: SUNITINIB MALATE
     Dosage: ONCE DAILY FOR 2 WEEKS THEN OFF 1 WEEK
     Route: 048
  3. FEFOL [ASCORBIC ACID;CYANOCOBALAMIN;FERROUS FUMARATE;FOLIC ACID] [Concomitant]
     Dosage: UNK, DAILY
  4. THYROXINE [Concomitant]
     Active Substance: LEVOTHYROXINE
     Dosage: 50 MG, DAILY
  5. PANTOPRAZOLE SODIUM [Concomitant]
     Active Substance: PANTOPRAZOLE SODIUM
     Dosage: 1 DF, DAILY

REACTIONS (4)
  - Typhoid fever [Unknown]
  - Infection [Unknown]
  - Blood thyroid stimulating hormone increased [Unknown]
  - Product dispensing error [Unknown]
